FAERS Safety Report 6204251-5 (Version None)
Quarter: 2009Q2

REPORT INFORMATION
  Report Type: 
  Country: None (occurrence: None)
  Receive Date: 20090527
  Receipt Date: 20090518
  Transmission Date: 20091009
  Serious: Yes (Other)
  Sender: FDA-Public Use
  Company Number: US-ABBOTT-09P-163-0574569-00

PATIENT
  Sex: Male

DRUGS (3)
  1. DEPAKOTE [Suspect]
     Indication: PATIENT RESTRAINT
     Dosage: HIGH DOSES
  2. SEROQUEL [Suspect]
     Indication: PATIENT RESTRAINT
     Dosage: HIGH DOSES
  3. ATIVAN [Suspect]
     Indication: PATIENT RESTRAINT
     Dosage: HIGH DOSES

REACTIONS (2)
  - DEHYDRATION [None]
  - DEPRESSED LEVEL OF CONSCIOUSNESS [None]
